FAERS Safety Report 7072298-5 (Version None)
Quarter: 2010Q4

REPORT INFORMATION
  Report Type: 
  Country: None (occurrence: None)
  Receive Date: 20101029
  Receipt Date: 20100105
  Transmission Date: 20110411
  Serious: No
  Sender: FDA-Public Use
  Company Number: A0837749A

PATIENT
  Age: 63 Year
  Sex: Male

DRUGS (1)
  1. ADVAIR DISKUS 100/50 [Suspect]
     Indication: CONGENITAL ANOMALY
     Route: 065
     Dates: start: 20090101, end: 20100101

REACTIONS (2)
  - PALPITATIONS [None]
  - PANIC ATTACK [None]
